FAERS Safety Report 15833014 (Version 1)
Quarter: 2019Q1

REPORT INFORMATION
  Report Type: Spontaneous
  Country: US (occurrence: US)
  Receive Date: 20190116
  Receipt Date: 20190116
  Transmission Date: 20190417
  Serious: Yes (Hospitalization)
  Sender: FDA-Public Use
  Company Number: None

PATIENT
  Age: 47 Year
  Sex: Female

DRUGS (7)
  1. DALFAMPRIDINE. [Suspect]
     Active Substance: DALFAMPRIDINE
     Indication: GAIT DISTURBANCE
     Route: 048
  2. MYRBETRIQ [Concomitant]
     Active Substance: MIRABEGRON
  3. BACLOFEN. [Concomitant]
     Active Substance: BACLOFEN
  4. ESCITALOPRAM [Concomitant]
     Active Substance: ESCITALOPRAM OXALATE
  5. CLONAZEPAM. [Concomitant]
     Active Substance: CLONAZEPAM
  6. OCREVUS [Concomitant]
     Active Substance: OCRELIZUMAB
  7. METHYLPHENIDATE. [Concomitant]
     Active Substance: METHYLPHENIDATE

REACTIONS (1)
  - Fall [None]
